FAERS Safety Report 25061487 (Version 1)
Quarter: 2025Q1

REPORT INFORMATION
  Report Type: Spontaneous
  Country: US (occurrence: US)
  Receive Date: 20250311
  Receipt Date: 20250311
  Transmission Date: 20250409
  Serious: Yes (Other)
  Sender: SPECGX
  Company Number: US-SPECGX-T202500558

PATIENT
  Age: 6 Decade
  Sex: Female

DRUGS (7)
  1. POSACONAZOLE [Suspect]
     Active Substance: POSACONAZOLE
     Indication: Prophylaxis
     Route: 065
  2. DECITABINE [Suspect]
     Active Substance: DECITABINE
     Indication: Acute myeloid leukaemia
     Route: 065
  3. PACRITINIB [Suspect]
     Active Substance: PACRITINIB
     Indication: Myelofibrosis
     Dosage: 200 MILLIGRAM, BID
     Route: 065
  4. PACRITINIB [Suspect]
     Active Substance: PACRITINIB
     Dosage: 100 MILLIGRAM, BID
     Route: 065
  5. ISAVUCONAZOLE [Suspect]
     Active Substance: ISAVUCONAZOLE
     Indication: Prophylaxis
     Route: 065
  6. MICAFUNGIN [Suspect]
     Active Substance: MICAFUNGIN SODIUM
     Indication: Aspergillus infection
     Route: 065
  7. VENETOCLAX [Suspect]
     Active Substance: VENETOCLAX

REACTIONS (1)
  - Blast crisis in myelogenous leukaemia [Unknown]
